FAERS Safety Report 16480269 (Version 1)
Quarter: 2019Q2

REPORT INFORMATION
  Report Type: Spontaneous
  Country: US (occurrence: US)
  Receive Date: 20190626
  Receipt Date: 20190626
  Transmission Date: 20190711
  Serious: Yes (Death)
  Sender: FDA-Public Use
  Company Number: PHEH2019US026971

PATIENT
  Age: 80 Year
  Sex: Male

DRUGS (1)
  1. PROMACTA [Suspect]
     Active Substance: ELTROMBOPAG OLAMINE
     Indication: PARKINSON^S DISEASE
     Dosage: 50 MG, QD
     Route: 048
     Dates: start: 201708

REACTIONS (2)
  - Product use in unapproved indication [Unknown]
  - Death [Fatal]

NARRATIVE: CASE EVENT DATE: 201708
